FAERS Safety Report 8072068-5 (Version None)
Quarter: 2012Q1

REPORT INFORMATION
  Report Type: 
  Country: None (occurrence: None)
  Receive Date: 20120126
  Receipt Date: 20120118
  Transmission Date: 20120608
  Serious: Yes (Disabling, Other)
  Sender: FDA-Public Use
  Company Number: US-CELGENEUS-163-21880-11042875

PATIENT
  Sex: Male

DRUGS (38)
  1. ANTIVERT [Concomitant]
     Dosage: 25 MILLIGRAM
     Route: 048
     Dates: start: 20100713
  2. COUMADIN [Concomitant]
     Dosage: 2.5 MILLIGRAM
     Route: 048
  3. NEURONTIN [Concomitant]
     Dosage: 200 MILLIGRAM
     Route: 048
     Dates: start: 20100915
  4. CAPSAICIN [Concomitant]
     Route: 061
     Dates: start: 20100512, end: 20110512
  5. COMPAZINE [Concomitant]
     Route: 065
     Dates: start: 20110913
  6. LOTRIMIN [Concomitant]
     Route: 048
     Dates: start: 20100506, end: 20110512
  7. MIRALAX [Concomitant]
     Route: 048
  8. ULTRAM [Concomitant]
     Dosage: 50 MILLIGRAM
     Route: 048
     Dates: start: 20100608
  9. COUMADIN [Concomitant]
     Dosage: 3 MILLIGRAM
     Route: 048
  10. GLYBURIDE [Concomitant]
     Dosage: 25 MILLIGRAM
     Route: 048
  11. GLYBURIDE [Concomitant]
     Route: 048
     Dates: end: 20110606
  12. LIDOCAINE HCL VISCOUS [Concomitant]
     Dates: start: 20110602
  13. MAGIC MOUTHWASH [Concomitant]
     Dosage: 1 TEASPOON
     Route: 065
     Dates: start: 20100301
  14. LASIX [Concomitant]
     Dosage: 30 MILLIGRAM
     Route: 048
  15. COMPAZINE [Concomitant]
     Dosage: 10 MILLIGRAM
     Route: 048
     Dates: start: 20100204, end: 20110512
  16. METFORMIN HCL [Concomitant]
     Route: 048
     Dates: end: 20110512
  17. METFORMIN HCL [Concomitant]
     Route: 065
     Dates: start: 20110913
  18. VALTREX [Concomitant]
     Dosage: 1000 MILLIGRAM
     Route: 065
     Dates: start: 20110208, end: 20110512
  19. DEXAMETHASONE [Concomitant]
     Route: 065
     Dates: start: 20110310, end: 20110606
  20. ASPIR-81 [Concomitant]
     Route: 048
  21. AVAPRO [Concomitant]
     Route: 048
  22. KLOR-CON [Concomitant]
     Dosage: 10
     Route: 048
  23. LOPRESSOR [Concomitant]
     Dosage: 100 MILLIGRAM
     Route: 048
  24. EPOETIN ALFA [Concomitant]
     Route: 065
     Dates: start: 20110913
  25. CLONIDINE HCL [Concomitant]
     Route: 065
     Dates: start: 20110913
  26. LOTRIMIN [Concomitant]
     Route: 065
     Dates: start: 20110913
  27. LIDODERM [Concomitant]
     Route: 065
     Dates: start: 20100518
  28. REVLIMID [Suspect]
     Indication: MULTIPLE MYELOMA
     Dosage: 25 MILLIGRAM
     Route: 048
     Dates: start: 20110301, end: 20110501
  29. FERROUS SULFATE TAB [Concomitant]
     Route: 048
  30. PRILOSEC [Concomitant]
     Dosage: 20 MILLIGRAM
     Route: 048
  31. EPOETIN ALFA [Concomitant]
     Dosage: 40,000 UNITS
     Route: 065
     Dates: start: 20100208, end: 20110616
  32. NORVASC [Concomitant]
     Route: 048
  33. CAPSAICIN [Concomitant]
     Route: 065
     Dates: start: 20110913
  34. CLONIDINE HCL [Concomitant]
     Route: 048
     Dates: end: 20110606
  35. DEXAMETHASONE [Concomitant]
     Route: 065
     Dates: end: 20110501
  36. OXYGEN [Concomitant]
     Route: 065
     Dates: start: 20110101, end: 20110501
  37. MINOXIDIL [Concomitant]
     Dosage: 10 MILLIGRAM
     Route: 048
  38. PHENERGAN [Concomitant]
     Dosage: 25 MILLIGRAM
     Route: 048
     Dates: start: 20100204

REACTIONS (4)
  - ASTHENIA [None]
  - DEMENTIA [None]
  - DYSPNOEA [None]
  - DECREASED APPETITE [None]
